FAERS Safety Report 21664662 (Version 5)
Quarter: 2023Q1

REPORT INFORMATION
  Report Type: Spontaneous
  Country: US (occurrence: US)
  Receive Date: 20221130
  Receipt Date: 20230314
  Transmission Date: 20230417
  Serious: Yes (Other)
  Sender: FDA-Public Use
  Company Number: US-HORIZON THERAPEUTICS-HZN-2022-009198

PATIENT

DRUGS (31)
  1. TEPEZZA [Suspect]
     Active Substance: TEPROTUMUMAB-TRBW
     Indication: Endocrine ophthalmopathy
     Dosage: FIRST INFUSION, 10 MG/KG, EVERY 3 WEEKS
     Route: 042
     Dates: start: 20221121
  2. TEPEZZA [Suspect]
     Active Substance: TEPROTUMUMAB-TRBW
     Indication: Basedow^s disease
     Dosage: INFUSION : 20 MG/KG, EVERY 3 WEEKS
     Route: 042
     Dates: start: 20221212
  3. TEPEZZA [Suspect]
     Active Substance: TEPROTUMUMAB-TRBW
     Indication: Basedow^s disease
     Dosage: INFUSION: CALCULATED DOSE: 1213.8 MG;  20 MG/KG, EVERY 3 WEEKS (3-8 INFUSIONS)
     Route: 042
     Dates: start: 20230103
  4. TEPEZZA [Suspect]
     Active Substance: TEPROTUMUMAB-TRBW
     Indication: Exophthalmos
     Dosage: FOURTH INFUSION: 1190.23 MG, EVERY 3 WEEKS
     Route: 042
     Dates: start: 20230123
  5. TEPEZZA [Suspect]
     Active Substance: TEPROTUMUMAB-TRBW
     Indication: Eye pain
     Dosage: FIFTH INFUSION: 1219.2 MG, EVERY 3 WEEKS
     Route: 042
     Dates: start: 20230213
  6. TEPEZZA [Suspect]
     Active Substance: TEPROTUMUMAB-TRBW
     Indication: Dry eye
     Dosage: SIXTH INFUSION: 1213.8 MG, EVERY 3 WEEKS
     Route: 042
     Dates: start: 20230306
  7. TEPEZZA [Suspect]
     Active Substance: TEPROTUMUMAB-TRBW
     Indication: Blepharitis
  8. TEPEZZA [Suspect]
     Active Substance: TEPROTUMUMAB-TRBW
     Indication: Dry eye
  9. TEPEZZA [Suspect]
     Active Substance: TEPROTUMUMAB-TRBW
     Indication: Eyelid oedema
  10. TEPEZZA [Suspect]
     Active Substance: TEPROTUMUMAB-TRBW
     Indication: Ocular hyperaemia
  11. UNSPECIFIED INGREDIENT [Suspect]
     Active Substance: UNSPECIFIED INGREDIENT
     Indication: Eye inflammation
     Dosage: UNK (FIRST DOSE)
     Route: 065
  12. PREDNISONE [Suspect]
     Active Substance: PREDNISONE
     Indication: Product used for unknown indication
     Dosage: 60 MG FOR LAST 8DAYS (20MG 3 TABS) QAM
     Route: 048
     Dates: end: 20221120
  13. PREDNISONE [Suspect]
     Active Substance: PREDNISONE
     Dosage: 200 MG, 2 TABS, QAM, X7 DAYS THEN 1 TAB X7 DAYS THEN STOP
     Route: 065
  14. LANTUS [Suspect]
     Active Substance: INSULIN GLARGINE
     Indication: Hyperglycaemia
     Dosage: 32 U QD (EVERY NIGHT)
     Route: 065
  15. LANTUS [Suspect]
     Active Substance: INSULIN GLARGINE
     Dosage: 25  U, NIGHT
     Route: 065
     Dates: start: 20230103
  16. LANTUS [Suspect]
     Active Substance: INSULIN GLARGINE
     Dosage: 40 U
     Route: 065
     Dates: start: 2023
  17. SODIUM CHLORIDE [Concomitant]
     Active Substance: SODIUM CHLORIDE
     Dosage: 5CC
  18. SODIUM CHLORIDE [Concomitant]
     Active Substance: SODIUM CHLORIDE
     Dosage: 10 CC
  19. SODIUM CHLORIDE [Concomitant]
     Active Substance: SODIUM CHLORIDE
     Dosage: 3CC
  20. COMBIGAN [Concomitant]
     Active Substance: BRIMONIDINE TARTRATE\TIMOLOL MALEATE
     Dosage: EYE DROPS 0.2-0.5%, BID
     Route: 047
  21. DORZOLAMIDE [Concomitant]
     Active Substance: DORZOLAMIDE
     Dosage: EYE DROPS, THREE TIMES A DAY
     Route: 047
  22. LATANOPROST [Concomitant]
     Active Substance: LATANOPROST
     Dosage: EYE DROP ONCE A DAY-EVENNG, QD (ONCE DAILY PM)
     Route: 047
  23. ASPIRIN [Concomitant]
     Active Substance: ASPIRIN
     Dosage: LOW DOSE 81MG ONCE DAILY
     Route: 048
  24. PROPRANOLOL HYDROCHLORIDE [Concomitant]
     Active Substance: PROPRANOLOL HYDROCHLORIDE
     Dosage: 60 MG, QD
     Route: 048
  25. NICORETTE [Concomitant]
     Active Substance: NICOTINE
     Dosage: 4 MG, BID
  26. VITAMINS NOS [Concomitant]
     Active Substance: VITAMINS
     Dosage: 1 DAILY
  27. SELENIUM [Concomitant]
     Active Substance: SELENIUM
     Dosage: 200 UG
  28. VITAMIN D3 [Concomitant]
     Active Substance: CHOLECALCIFEROL
     Dosage: 2000 IU, QD
  29. VITAMIN C [Concomitant]
     Active Substance: ASCORBIC ACID
     Dosage: 1000 MG
  30. SODIUM CHLORIDE [Concomitant]
     Active Substance: SODIUM CHLORIDE
     Dosage: 100 ML, 1 BAG
  31. STERILE WATER [Concomitant]
     Active Substance: WATER

REACTIONS (28)
  - Hyperglycaemia [Unknown]
  - Myalgia [Unknown]
  - Back pain [Unknown]
  - Rash [Recovered/Resolved]
  - Chills [Unknown]
  - Loss of personal independence in daily activities [Unknown]
  - Frequent bowel movements [Unknown]
  - Nasal dryness [Unknown]
  - Epistaxis [Unknown]
  - Blood pressure systolic increased [Recovering/Resolving]
  - Ear discomfort [Unknown]
  - Blood thyroid stimulating hormone increased [Unknown]
  - Pain [Unknown]
  - Muscular weakness [Unknown]
  - Musculoskeletal stiffness [Unknown]
  - Diarrhoea [Unknown]
  - Drug ineffective [Unknown]
  - Tinnitus [Unknown]
  - Dry skin [Unknown]
  - Gait disturbance [Unknown]
  - Hyperthyroidism [Unknown]
  - Dyschromatopsia [Not Recovered/Not Resolved]
  - Visual impairment [Not Recovered/Not Resolved]
  - Erythema of eyelid [Unknown]
  - Eye irritation [Unknown]
  - Eye inflammation [Recovering/Resolving]
  - Photophobia [Unknown]
  - Injection site pain [Unknown]

NARRATIVE: CASE EVENT DATE: 20221101
